FAERS Safety Report 4965349-2 (Version None)
Quarter: 2006Q2

REPORT INFORMATION
  Report Type: 
  Country: None (occurrence: None)
  Receive Date: 20060406
  Receipt Date: 20060404
  Transmission Date: 20061013
  Serious: Yes (Hospitalization)
  Sender: FDA-Public Use
  Company Number: FR-MERCK-0604FRA00007

PATIENT
  Age: 57 Year
  Sex: Female

DRUGS (4)
  1. VIOXX [Suspect]
     Indication: ANKYLOSING SPONDYLITIS
     Route: 048
     Dates: start: 20010101, end: 20010101
  2. VIOXX [Suspect]
     Route: 048
     Dates: start: 20040101, end: 20040101
  3. ACEBUTOLOL [Concomitant]
     Route: 048
  4. ACETAMINOPHEN [Concomitant]
     Indication: ANKYLOSING SPONDYLITIS
     Route: 048

REACTIONS (5)
  - ARTHRALGIA [None]
  - C-REACTIVE PROTEIN INCREASED [None]
  - CONDITION AGGRAVATED [None]
  - PYREXIA [None]
  - REBOUND EFFECT [None]
